FAERS Safety Report 16827424 (Version 1)
Quarter: 2019Q3

REPORT INFORMATION
  Report Type: Report from Study
  Country: None (occurrence: BE)
  Receive Date: 20190919
  Receipt Date: 20190919
  Transmission Date: 20191005
  Serious: Yes (Other)
  Sender: FDA-Public Use
  Company Number: BE-ABBVIE-19K-013-2929865-00

PATIENT
  Sex: Female
  Weight: 54 kg

DRUGS (3)
  1. DUODOPA [Suspect]
     Active Substance: CARBIDOPA\LEVODOPA
     Dosage: DOSES CONTINUOUSLY MONITORED AND ADAPTED
     Route: 050
     Dates: start: 201407, end: 20180907
  2. DUODOPA [Suspect]
     Active Substance: CARBIDOPA\LEVODOPA
     Dosage: MD=3ML, CD=5.5ML/HR DURING 16HRS, ED=1ML
     Route: 050
     Dates: start: 20180907
  3. DUODOPA [Suspect]
     Active Substance: CARBIDOPA\LEVODOPA
     Indication: PARKINSON^S DISEASE
     Dosage: MD=6ML, CD=4ML/HR DURING 16HRS, ED=4ML
     Route: 050
     Dates: start: 20140714, end: 20140717

REACTIONS (1)
  - Back disorder [Unknown]
